FAERS Safety Report 8009540-X (Version None)
Quarter: 2011Q4

REPORT INFORMATION
  Report Type: 
  Country: None (occurrence: None)
  Receive Date: 20111227
  Receipt Date: 20111215
  Transmission Date: 20120403
  Serious: Yes (Other)
  Sender: FDA-Public Use
  Company Number: US-ASTRAZENECA-2011SE76219

PATIENT
  Age: 80 Year
  Sex: Female

DRUGS (1)
  1. SYMBICORT [Suspect]
     Indication: CHRONIC OBSTRUCTIVE PULMONARY DISEASE
     Dosage: 160/4.5 MCG 2 PUFFS BID (IN THE MORNING AND AT NIGHT)
     Route: 055

REACTIONS (5)
  - CHEILITIS [None]
  - DRUG DOSE OMISSION [None]
  - ORAL CANDIDIASIS [None]
  - HIP FRACTURE [None]
  - DEAFNESS UNILATERAL [None]
